FAERS Safety Report 19522471 (Version 1)
Quarter: 2021Q3

REPORT INFORMATION
  Report Type: Spontaneous
  Country: US (occurrence: US)
  Receive Date: 20210712
  Receipt Date: 20210712
  Transmission Date: 20211014
  Serious: No
  Sender: FDA-Public Use
  Company Number: US-MYOVANT SCIENCES GMBH-2021MYSCI0500321

PATIENT
  Age: 73 Year
  Sex: Male

DRUGS (2)
  1. ORGOVYX [Suspect]
     Active Substance: RELUGOLIX
     Indication: PROSTATE CANCER
     Dosage: 360 MILLIGRAM, ONE TIME DOSE
     Route: 048
     Dates: start: 20210503, end: 20210503
  2. ORGOVYX [Suspect]
     Active Substance: RELUGOLIX
     Dosage: 120 MILLIGRAM, QD
     Route: 048
     Dates: start: 20210504

REACTIONS (19)
  - Pain [Unknown]
  - Muscular weakness [Unknown]
  - Diarrhoea [Unknown]
  - Asthenia [Unknown]
  - Balance disorder [Unknown]
  - Dizziness [Unknown]
  - Gait disturbance [Unknown]
  - Joint swelling [Unknown]
  - Constipation [Unknown]
  - Oropharyngeal discomfort [Unknown]
  - Memory impairment [Unknown]
  - Pyrexia [Recovered/Resolved]
  - Genital atrophy [Unknown]
  - Dysphonia [Unknown]
  - Groin pain [Unknown]
  - Fatigue [Unknown]
  - Upper-airway cough syndrome [Unknown]
  - Hot flush [Unknown]
  - Blood urine present [Unknown]

NARRATIVE: CASE EVENT DATE: 20210516
